FAERS Safety Report 4467050-0 (Version None)
Quarter: 2004Q4

REPORT INFORMATION
  Report Type: 
  Country: None (occurrence: None)
  Receive Date: 20041004
  Receipt Date: 20040921
  Transmission Date: 20050328
  Serious: Yes (Disabling)
  Sender: FDA-Public Use
  Company Number: 002#4#2004-00021

PATIENT
  Age: 30 Year
  Sex: Female

DRUGS (5)
  1. PPA/CPM-75/8MG (0TC) (PHENYLPROPANOLAMINE HCI, CHLORPHENIRAMINE MALEAT [Suspect]
     Dosage: ORAL
     Route: 048
  2. NYQUIL [Concomitant]
  3. BC-POWDER [Concomitant]
  4. ALKA-SELTZER [Concomitant]
  5. MOTRIN [Concomitant]

REACTIONS (2)
  - CEREBROVASCULAR ACCIDENT [None]
  - INJURY [None]
